FAERS Safety Report 6086538-2 (Version None)
Quarter: 2009Q1

REPORT INFORMATION
  Report Type: 
  Country: None (occurrence: None)
  Receive Date: 20090223
  Receipt Date: 20090218
  Transmission Date: 20090719
  Serious: Yes (Life-Threatening, Other)
  Sender: FDA-Public Use
  Company Number: M051784

PATIENT
  Age: 39 Year
  Sex: Male

DRUGS (2)
  1. FUNGIZONE [Suspect]
     Indication: COCCIDIOIDOMYCOSIS
     Route: 042
  2. NOT REPORTED [Concomitant]

REACTIONS (4)
  - CARDIAC FAILURE CONGESTIVE [None]
  - CONGESTIVE CARDIOMYOPATHY [None]
  - HYPOMAGNESAEMIA [None]
  - RENAL IMPAIRMENT [None]
